FAERS Safety Report 15243328 (Version 1)
Quarter: 2018Q3

REPORT INFORMATION
  Report Type: Spontaneous
  Country: JP (occurrence: JP)
  Receive Date: 20180806
  Receipt Date: 20180806
  Transmission Date: 20181010
  Serious: Yes (Death)
  Sender: FDA-Public Use
  Company Number: JP-IPSEN BIOPHARMACEUTICALS, INC.-2018-10501

PATIENT

DRUGS (1)
  1. LANREOTIDE [Suspect]
     Active Substance: LANREOTIDE
     Indication: INSULINOMA
     Dosage: NOT REPORTED
     Route: 058
     Dates: start: 201803, end: 201806

REACTIONS (1)
  - Oedema [Fatal]

NARRATIVE: CASE EVENT DATE: 2018
